FAERS Safety Report 8104483-5 (Version None)
Quarter: 2012Q1

REPORT INFORMATION
  Report Type: 
  Country: None (occurrence: None)
  Receive Date: 20120130
  Receipt Date: 20120130
  Transmission Date: 20120608
  Serious: Yes (Hospitalization, Disabling)
  Sender: FDA-Public Use
  Company Number: CA-JNJFOC-20110312534

PATIENT
  Sex: Male
  Weight: 76 kg

DRUGS (3)
  1. REMICADE [Suspect]
     Indication: CROHN'S DISEASE
     Route: 042
     Dates: start: 20100301, end: 20110201
  2. METHOTREXATE [Concomitant]
     Indication: CROHN'S DISEASE
     Route: 058
  3. REMICADE [Suspect]
     Route: 042
     Dates: start: 20090101, end: 20110201

REACTIONS (2)
  - CEREBROVASCULAR ACCIDENT [None]
  - NEUROSYPHILIS [None]
